FAERS Safety Report 7806393-7 (Version None)
Quarter: 2011Q4

REPORT INFORMATION
  Report Type: 
  Country: None (occurrence: None)
  Receive Date: 20111011
  Receipt Date: 20111005
  Transmission Date: 20120403
  Serious: Yes (Other)
  Sender: FDA-Public Use
  Company Number: US-PFIZER INC-2011161063

PATIENT
  Sex: Male
  Weight: 74.83 kg

DRUGS (1)
  1. TOVIAZ [Suspect]
     Indication: HYPERTONIC BLADDER
     Dosage: 8 MG, 1X/DAY
     Route: 048
     Dates: start: 20110627, end: 20110629

REACTIONS (3)
  - BLINDNESS [None]
  - EYE DISORDER [None]
  - RETINAL INJURY [None]
